FAERS Safety Report 15338109 (Version 2)
Quarter: 2018Q3

REPORT INFORMATION
  Report Type: Spontaneous
  Country: US (occurrence: US)
  Receive Date: 20180831
  Receipt Date: 20180913
  Transmission Date: 20181010
  Serious: Yes (Other)
  Sender: FDA-Public Use
  Company Number: US-AMGEN-USASP2018119560

PATIENT
  Age: 63 Year
  Sex: Female
  Weight: 42.18 kg

DRUGS (1)
  1. NEULASTA [Suspect]
     Active Substance: PEGFILGRASTIM
     Indication: PROPHYLAXIS
     Dosage: 6 MG, CYCLICAL (DAY5 OF EVERY CYCLE)
     Route: 058
     Dates: start: 20180512

REACTIONS (5)
  - Neutrophil count decreased [Unknown]
  - Wrong technique in product usage process [Unknown]
  - Metastases to central nervous system [Not Recovered/Not Resolved]
  - Drug dose omission [Unknown]
  - Accidental exposure to product [Unknown]

NARRATIVE: CASE EVENT DATE: 2018
